FAERS Safety Report 23261068 (Version 1)
Quarter: 2023Q4

REPORT INFORMATION
  Report Type: Spontaneous
  Country: JP (occurrence: JP)
  Receive Date: 20231205
  Receipt Date: 20231205
  Transmission Date: 20240110
  Serious: Yes (Hospitalization, Other)
  Sender: FDA-Public Use
  Company Number: JP-MLMSERVICE-20231120-4666266-1

PATIENT
  Age: 90 Year
  Sex: Female

DRUGS (1)
  1. VALACYCLOVIR [Suspect]
     Active Substance: VALACYCLOVIR HYDROCHLORIDE
     Indication: Herpes zoster
     Dosage: 3000 MG, ONCE PER DAY

REACTIONS (5)
  - Toxic encephalopathy [Recovering/Resolving]
  - Drug level above therapeutic [Recovering/Resolving]
  - Crystalluria [Recovering/Resolving]
  - Nephropathy toxic [Recovering/Resolving]
  - Coma [Recovering/Resolving]
